FAERS Safety Report 10196271 (Version 1)
Quarter: 2014Q2

REPORT INFORMATION
  Report Type: Spontaneous
  Country: US (occurrence: US)
  Receive Date: 20140527
  Receipt Date: 20140527
  Transmission Date: 20141212
  Serious: No
  Sender: FDA-Public Use
  Company Number: US-JNJFOC-20140502178

PATIENT
  Age: 71 Year
  Sex: Female

DRUGS (1)
  1. INVEGA [Suspect]
     Indication: PRODUCT USED FOR UNKNOWN INDICATION
     Route: 048

REACTIONS (9)
  - Mental impairment [Unknown]
  - Cough [Unknown]
  - Rhinorrhoea [Unknown]
  - Diarrhoea [Unknown]
  - Dizziness [Unknown]
  - Balance disorder [Unknown]
  - Insomnia [Unknown]
  - Gait disturbance [Unknown]
  - Vertigo [Unknown]
